FAERS Safety Report 21873019 (Version 1)
Quarter: 2023Q1

REPORT INFORMATION
  Report Type: Spontaneous
  Country: ES (occurrence: ES)
  Receive Date: 20230117
  Receipt Date: 20230117
  Transmission Date: 20230418
  Serious: Yes (Death)
  Sender: FDA-Public Use
  Company Number: None

PATIENT
  Age: 1 Day
  Sex: Female
  Weight: 0.84 kg

DRUGS (1)
  1. PROPOFOL [Suspect]
     Active Substance: PROPOFOL
     Indication: Wrong product administered
     Dosage: UNK
     Route: 042
     Dates: start: 20200103, end: 20200105

REACTIONS (2)
  - Wrong product administered [Fatal]
  - Hypotension [Fatal]

NARRATIVE: CASE EVENT DATE: 20200103
